FAERS Safety Report 5381026-0 (Version None)
Quarter: 2007Q2

REPORT INFORMATION
  Report Type: 
  Country: None (occurrence: None)
  Receive Date: 20070629
  Receipt Date: 20070214
  Transmission Date: 20071010
  Serious: Yes (Hospitalization)
  Sender: FDA-Public Use
  Company Number: US200611003644

PATIENT
  Age: 69 Year
  Sex: Female

DRUGS (9)
  1. HUMALOG [Suspect]
     Indication: DIABETES MELLITUS
     Dates: start: 20040101, end: 20061117
  2. HUMALOG [Suspect]
     Indication: DIABETES MELLITUS
     Dosage: AS NEEDED
     Dates: start: 20061117
  3. HUMALOG PEN [Concomitant]
  4. NEXIUM [Concomitant]
  5. LANTUS [Concomitant]
  6. NADOLOL [Concomitant]
  7. ALTACE [Concomitant]
  8. SYNTHROID [Concomitant]
  9. INSULIN (INSULIN) [Concomitant]

REACTIONS (3)
  - HEPATIC CIRRHOSIS [None]
  - RECTAL HAEMORRHAGE [None]
  - VARICES OESOPHAGEAL [None]
